FAERS Safety Report 7516625-0 (Version None)
Quarter: 2011Q2

REPORT INFORMATION
  Report Type: 
  Country: None (occurrence: None)
  Receive Date: 20110523
  Receipt Date: 20110511
  Transmission Date: 20111010
  Serious: Yes (Death)
  Sender: FDA-Public Use
  Company Number: JPI-P-014798

PATIENT
  Age: 61 Year
  Sex: Male

DRUGS (2)
  1. XYREM [Suspect]
     Indication: SLEEP DISORDER
     Dosage: 9 GM (4.5 GM, 2 IN 1 D), ORAL 10 GM (5 GM, 2 IN 1 D), ORAL
     Route: 048
     Dates: start: 20080521, end: 20080101
  2. XYREM [Suspect]
     Indication: SLEEP DISORDER
     Dosage: 9 GM (4.5 GM, 2 IN 1 D), ORAL 10 GM (5 GM, 2 IN 1 D), ORAL
     Route: 048
     Dates: start: 20040223, end: 20080520

REACTIONS (1)
  - DEATH [None]
